FAERS Safety Report 6269864-3 (Version None)
Quarter: 2009Q3

REPORT INFORMATION
  Report Type: 
  Country: None (occurrence: None)
  Receive Date: 20090714
  Receipt Date: 20080702
  Transmission Date: 20100115
  Serious: Yes (Death)
  Sender: FDA-Public Use
  Company Number: DAV-AE-MTX-09-031

PATIENT
  Age: 16 Year
  Sex: Male

DRUGS (5)
  1. METHOTREXATE [Suspect]
     Indication: ACUTE PROMYELOCYTIC LEUKAEMIA
     Dosage: 2,5 MG,
  2. ALL-TRANS RETINOIC ACID [Concomitant]
  3. DAUNORUBICIN HCL [Concomitant]
  4. CYTARABINE [Concomitant]
  5. MERCAPTOPURINE [Concomitant]

REACTIONS (7)
  - INFLAMMATION [None]
  - LEUKAEMIA RECURRENT [None]
  - MEDIASTINAL MASS [None]
  - NAUSEA [None]
  - OESOPHAGEAL DILATATION [None]
  - OESOPHAGEAL STENOSIS [None]
  - VOMITING [None]
